FAERS Safety Report 6639146-6 (Version None)
Quarter: 2010Q1

REPORT INFORMATION
  Report Type: 
  Country: None (occurrence: None)
  Receive Date: 20100312
  Receipt Date: 20100225
  Transmission Date: 20100710
  Serious: No
  Sender: FDA-Public Use
  Company Number: 008987

PATIENT
  Age: 84 Year
  Sex: Male

DRUGS (9)
  1. PLETAL [Suspect]
     Dosage: 100 MG, BID, ORAL
     Route: 048
     Dates: start: 20091014, end: 20091021
  2. CONIEL (BENIDIPINE HYDROCHLORIDE) [Concomitant]
  3. CRESTOR [Concomitant]
  4. ZETIA [Concomitant]
  5. TAMSULOSIN HCL [Concomitant]
  6. ARICEPT [Concomitant]
  7. CHLORMADINONE ACETATE TAB [Concomitant]
  8. STAYBLA (MIDAFENACIN) [Concomitant]
  9. DOXAZOSIN MESYLATE [Concomitant]

REACTIONS (4)
  - CARDIAC FAILURE [None]
  - DYSSTASIA [None]
  - FACE OEDEMA [None]
  - OEDEMA PERIPHERAL [None]
